FAERS Safety Report 4381626-0 (Version None)
Quarter: 2004Q2

REPORT INFORMATION
  Report Type: 
  Country: None (occurrence: None)
  Receive Date: 20040621
  Receipt Date: 20040609
  Transmission Date: 20050107
  Serious: Yes (Other)
  Sender: FDA-Public Use
  Company Number: PL-ROCHE-370994

PATIENT
  Age: 70 Year
  Sex: Female
  Weight: 68 kg

DRUGS (7)
  1. XELODA [Suspect]
     Indication: BREAST CANCER
     Route: 048
     Dates: start: 20040530, end: 20040602
  2. XELODA [Suspect]
     Dosage: DOSE REDUCED BY ONE TABLET.
     Route: 048
     Dates: start: 20040602, end: 20040603
  3. MONONIT [Concomitant]
     Dosage: DOSING REGIMEN REPORTED AS 1-1-0.
     Route: 048
  4. MOLSIDOMINA [Concomitant]
     Dosage: DOSING REGIMEN REPORTED AS 0-0-1.
     Route: 048
  5. BONEFOS [Concomitant]
     Route: 048
  6. HYDROXICINA [Concomitant]
     Dosage: DOSING REGIMEN REPORTED AS 0-0-1.
     Route: 048
  7. TRAMAL [Concomitant]
     Indication: PAIN
     Route: 048

REACTIONS (2)
  - ASTHENIA [None]
  - BURNING SENSATION [None]
